FAERS Safety Report 7333112-3 (Version None)
Quarter: 2011Q1

REPORT INFORMATION
  Report Type: 
  Country: None (occurrence: None)
  Receive Date: 20110304
  Receipt Date: 20110224
  Transmission Date: 20110831
  Serious: Yes (Other)
  Sender: FDA-Public Use
  Company Number: PHHY2010BR50127

PATIENT
  Age: 72 Year
  Sex: Female

DRUGS (3)
  1. COMTAN [Suspect]
     Indication: PARKINSON'S DISEASE
     Dosage: 200 MG, UNK
  2. PROLOPA [Concomitant]
     Indication: PARKINSON'S DISEASE
     Dosage: 1 TABLET, EVERY THREE HOURS
  3. PAMELOR [Suspect]
     Indication: DEPRESSION
     Dosage: UNK
     Dates: start: 20070101

REACTIONS (7)
  - DYSARTHRIA [None]
  - PARALYSIS [None]
  - APHASIA [None]
  - CONSTIPATION [None]
  - NAUSEA [None]
  - DYSKINESIA [None]
  - WEIGHT INCREASED [None]
